FAERS Safety Report 4434759-4 (Version None)
Quarter: 2004Q3

REPORT INFORMATION
  Report Type: 
  Country: None (occurrence: None)
  Receive Date: 20040827
  Receipt Date: 20040728
  Transmission Date: 20050211
  Serious: No
  Sender: FDA-Public Use
  Company Number: US-BRISTOL-MYERS SQUIBB COMPANY-12654877

PATIENT
  Age: 34 Year
  Sex: Female

DRUGS (1)
  1. DEFINITY [Suspect]
     Dosage: VIA DILUTED BOLUS
     Route: 040
     Dates: start: 20040728, end: 20040728

REACTIONS (3)
  - DIZZINESS [None]
  - FLUSHING [None]
  - NAUSEA [None]
